FAERS Safety Report 15268310 (Version 1)
Quarter: 2018Q3

REPORT INFORMATION
  Report Type: Spontaneous
  Country: US (occurrence: US)
  Receive Date: 20180726
  Receipt Date: 20180726
  Transmission Date: 20181010
  Serious: Yes (Life-Threatening, Hospitalization)
  Sender: FDA-Public Use
  Company Number: None

PATIENT
  Age: 46 Year
  Sex: Female
  Weight: 63 kg

DRUGS (6)
  1. FENTANYL. [Concomitant]
     Active Substance: FENTANYL
  2. OPDIVO [Suspect]
     Active Substance: NIVOLUMAB
     Indication: METASTATIC MALIGNANT MELANOMA
     Dates: start: 20180314, end: 20180621
  3. HYDROMORPHONE [Concomitant]
     Active Substance: HYDROMORPHONE
  4. MIRTAZAPINE. [Concomitant]
     Active Substance: MIRTAZAPINE
  5. METHADONE [Concomitant]
     Active Substance: METHADONE HYDROCHLORIDE
  6. GABAPENTIN. [Concomitant]
     Active Substance: GABAPENTIN

REACTIONS (10)
  - Ear discomfort [None]
  - Panic reaction [None]
  - Heart rate increased [None]
  - Rash papular [None]
  - Pruritus [None]
  - Hyperhidrosis [None]
  - Dyspnoea [None]
  - Crying [None]
  - Feeling hot [None]
  - Rash [None]

NARRATIVE: CASE EVENT DATE: 20180621
